FAERS Safety Report 8852842 (Version 3)
Quarter: 2012Q4

REPORT INFORMATION
  Report Type: 
  Country: US (occurrence: US)
  Receive Date: 20121022
  Receipt Date: 20121128
  Transmission Date: 20130627
  Serious: Yes (Hospitalization)
  Sender: FDA-Public Use
  Company Number: US-ACTELION-A-NJ2012-72851

PATIENT
  Age: 33 Year
  Sex: Female

DRUGS (4)
  1. VELETRI [Suspect]
     Indication: PULMONARY ARTERIAL HYPERTENSION
     Dosage: 30.5 ng/kg, per min
     Route: 041
     Dates: start: 20101201
  2. COUMADIN [Concomitant]
  3. DIGOXIN [Concomitant]
  4. SPIRONOLACTONE [Concomitant]

REACTIONS (4)
  - Gallbladder disorder [Unknown]
  - Malaise [Unknown]
  - Gallbladder pain [Unknown]
  - Drug dose omission [Unknown]
